FAERS Safety Report 21207808 (Version 2)
Quarter: 2022Q3

REPORT INFORMATION
  Report Type: Spontaneous
  Country: JP (occurrence: JP)
  Receive Date: 20220812
  Receipt Date: 20220909
  Transmission Date: 20221027
  Serious: Yes (Death, Other)
  Sender: FDA-Public Use
  Company Number: JP-OTSUKA-2022_040446

PATIENT
  Age: 19 Year
  Sex: Male

DRUGS (4)
  1. ABILIFY MAINTENA [Suspect]
     Active Substance: ARIPIPRAZOLE
     Indication: Schizophrenia
     Dosage: 400 MG/SHOT
     Route: 030
     Dates: start: 20211215, end: 20220723
  2. ABILIFY [Concomitant]
     Active Substance: ARIPIPRAZOLE
     Indication: Product used for unknown indication
     Dosage: 12 MG/DAY, UNK
     Route: 048
     Dates: start: 20211209, end: 20211231
  3. LORAZEPAM [Concomitant]
     Active Substance: LORAZEPAM
     Indication: Product used for unknown indication
     Dosage: 2 MG/DAY,UNK
     Route: 048
     Dates: end: 20220807
  4. ROZEREM [Concomitant]
     Active Substance: RAMELTEON
     Indication: Product used for unknown indication
     Dosage: 8 MG/DAY, UNK
     Route: 048
     Dates: start: 20211209, end: 20220127

REACTIONS (8)
  - Completed suicide [Fatal]
  - Hallucination [Unknown]
  - Suicide attempt [Unknown]
  - Affective disorder [Unknown]
  - Tension [Unknown]
  - Anger [Unknown]
  - Delusion [Unknown]
  - Anxiety [Unknown]

NARRATIVE: CASE EVENT DATE: 20220401
